FAERS Safety Report 5802699-1 (Version None)
Quarter: 2008Q3

REPORT INFORMATION
  Report Type: 
  Country: None (occurrence: None)
  Receive Date: 20080702
  Receipt Date: 20080617
  Transmission Date: 20090109
  Serious: Yes (Hospitalization)
  Sender: FDA-Public Use
  Company Number: S08-FRA-01822-01

PATIENT
  Age: 47 Year
  Sex: Female
  Weight: 62 kg

DRUGS (3)
  1. ESCITALOPRAM [Suspect]
     Indication: DEPRESSION
     Dosage: 10 MG QD PO
     Route: 048
     Dates: start: 20080303, end: 20080307
  2. ALPRAZOLAM [Concomitant]
  3. BION (MULTIVITAMIN COMPLEX) [Concomitant]

REACTIONS (3)
  - ASTHENIA [None]
  - PANIC ATTACK [None]
  - SUICIDAL IDEATION [None]
